FAERS Safety Report 7022568-1 (Version None)
Quarter: 2010Q3

REPORT INFORMATION
  Report Type: 
  Country: None (occurrence: None)
  Receive Date: 20100930
  Receipt Date: 20100915
  Transmission Date: 20110219
  Serious: Yes (Other)
  Sender: FDA-Public Use
  Company Number: AU-BAYER-201039718GPV

PATIENT
  Age: 71 Year
  Sex: Male

DRUGS (4)
  1. SOTALOL [Suspect]
     Indication: ATRIAL FIBRILLATION
  2. GOSERELIN ACETATE [Suspect]
     Indication: PROSTATE CANCER
     Route: 058
     Dates: start: 20080101
  3. CYPROTERONE ACETATE [Concomitant]
     Indication: PROSTATE CANCER
  4. BICALUTAMIDE [Concomitant]
     Indication: PROSTATE CANCER

REACTIONS (5)
  - BLINDNESS [None]
  - HEADACHE [None]
  - NAUSEA [None]
  - VISION BLURRED [None]
  - VOMITING [None]
